FAERS Safety Report 6766651-4 (Version None)
Quarter: 2010Q2

REPORT INFORMATION
  Report Type: 
  Country: None (occurrence: None)
  Receive Date: 20100611
  Receipt Date: 20100520
  Transmission Date: 20101027
  Serious: Yes (Other)
  Sender: FDA-Public Use
  Company Number: JP-ALLERGAN-1007260US

PATIENT
  Age: 16 Year
  Sex: Female

DRUGS (7)
  1. LUMIGAN [Suspect]
     Indication: GLAUCOMA
     Dosage: 1 GTT, UNK
     Route: 047
     Dates: start: 20091209
  2. BRINZOLAMIDE [Concomitant]
     Dosage: UNK
     Dates: start: 20081210
  3. CARTEOLOL HYDROCHLORIDE [Concomitant]
     Dosage: UNK
     Dates: start: 20080819
  4. ACETAZOLAMIDE [Concomitant]
     Dosage: UNK
     Dates: start: 20081111, end: 20100119
  5. POTASSIUM L-ASPARTATE [Concomitant]
     Dosage: UNK
     Dates: start: 20081111, end: 20100119
  6. LATANOPROST [Concomitant]
     Dosage: UNK
     Dates: start: 20090101, end: 20091209
  7. ECOLICIN [Concomitant]
     Indication: INFECTION
     Dosage: UNK
     Dates: end: 20091209

REACTIONS (1)
  - INTRAOCULAR PRESSURE INCREASED [None]
